FAERS Safety Report 5846453-3 (Version None)
Quarter: 2008Q3

REPORT INFORMATION
  Report Type: 
  Country: None (occurrence: None)
  Receive Date: 20080815
  Receipt Date: 20080804
  Transmission Date: 20090109
  Serious: Yes (Other)
  Sender: FDA-Public Use
  Company Number: JP-NOVOPROD-277248

PATIENT
  Age: 33 Year
  Sex: Female
  Weight: 66 kg

DRUGS (15)
  1. NOVORAPID 30 MIX CHU FLEXPEN [Suspect]
     Indication: TYPE 2 DIABETES MELLITUS
     Dosage: 50 TO 90 IU, QD
     Route: 058
     Dates: start: 20061219, end: 20070313
  2. NOVORAPID 30 MIX CHU FLEXPEN [Suspect]
     Dosage: 60 TO 115 IU, QD
     Route: 058
     Dates: start: 20070516
  3. HUMALOG [Suspect]
     Indication: TYPE 2 DIABETES MELLITUS
     Dosage: 12 TO 20 IU, QD
     Route: 058
     Dates: start: 20040210, end: 20041012
  4. HUMALOG [Suspect]
     Dosage: 10 TO 40 IU, QD
     Dates: start: 20041102, end: 20071223
  5. HUMALOG [Suspect]
     Dosage: 0+10+0 UNK, UNK
     Route: 058
     Dates: start: 20070417
  6. LANTUS [Suspect]
     Indication: TYPE 2 DIABETES MELLITUS
     Dosage: 10 TO 95 IU, QD
     Route: 058
     Dates: start: 20040224, end: 20080226
  7. NOVOLIN R [Concomitant]
     Indication: TYPE 2 DIABETES MELLITUS
     Dosage: 20 IU, QD
     Route: 058
     Dates: start: 20041019, end: 20041102
  8. NOVOLIN N [Concomitant]
     Indication: TYPE 2 DIABETES MELLITUS
     Dosage: 6 IU, QD
     Route: 058
     Dates: start: 20050215, end: 20050616
  9. NOVOLIN N [Concomitant]
     Dosage: 30 TO 115 IU, UNK
     Dates: start: 20070703
  10. HUMALOG [Concomitant]
     Indication: TYPE 2 DIABETES MELLITUS
     Dosage: 90 IU, QD
     Route: 058
     Dates: start: 20070315, end: 20070527
  11. LEVEMIR [Concomitant]
     Indication: TYPE 2 DIABETES MELLITUS
     Dosage: 100 IU, QD
     Route: 058
     Dates: start: 20080226, end: 20080318
  12. EUGLUCON [Concomitant]
     Indication: TYPE 2 DIABETES MELLITUS
     Dosage: 1.25 MG, QD
     Route: 048
     Dates: start: 20060822, end: 20060905
  13. AMARYL [Concomitant]
     Indication: TYPE 2 DIABETES MELLITUS
     Dosage: 1 TO 3 MG, QD
     Route: 048
     Dates: start: 20060919, end: 20071218
  14. ACTOS [Concomitant]
     Indication: TYPE 2 DIABETES MELLITUS
     Dosage: 15 MG, QD
     Route: 048
     Dates: start: 20061121, end: 20070417
  15. CELESTAMINE                        /01221101/ [Concomitant]
     Indication: DRUG USE FOR UNKNOWN INDICATION
     Dosage: 2 TAB, QD
     Route: 048
     Dates: start: 20070717

REACTIONS (2)
  - ANTI-INSULIN ANTIBODY INCREASED [None]
  - INSULIN RESISTANCE [None]
